FAERS Safety Report 23069254 (Version 2)
Quarter: 2023Q4

REPORT INFORMATION
  Report Type: Spontaneous
  Country: FR (occurrence: FR)
  Receive Date: 20231016
  Receipt Date: 20231020
  Transmission Date: 20240110
  Serious: Yes (Other)
  Sender: FDA-Public Use
  Company Number: FR-PFM-2023-05459

PATIENT
  Age: 58 Year
  Sex: Female
  Weight: 58 kg

DRUGS (6)
  1. BRAFTOVI [Suspect]
     Active Substance: ENCORAFENIB
     Indication: Metastatic malignant melanoma
     Dosage: 6 DF PER DAY
     Route: 048
     Dates: start: 20230823, end: 20230911
  2. BRAFTOVI [Suspect]
     Active Substance: ENCORAFENIB
     Indication: BRAF gene mutation
     Dosage: 4 DF DAILY (MORNING)
     Route: 048
     Dates: start: 20230920, end: 20230925
  3. MEKTOVI [Suspect]
     Active Substance: BINIMETINIB
     Indication: Metastatic malignant melanoma
     Dosage: 3 DF, BID (2/DAY)
     Route: 048
     Dates: start: 20230823, end: 20230911
  4. MEKTOVI [Suspect]
     Active Substance: BINIMETINIB
     Indication: BRAF gene mutation
  5. PREDNISOLONE [Concomitant]
     Active Substance: PREDNISOLONE
     Indication: Brain oedema
     Dosage: 60 MG PER DAY
     Route: 065
     Dates: start: 20230817
  6. LANSOPRAZOLE [Concomitant]
     Active Substance: LANSOPRAZOLE
     Indication: Prophylaxis
     Dosage: 40 MG PER DAY
     Route: 065
     Dates: start: 20230817

REACTIONS (8)
  - Hepatic cytolysis [Recovered/Resolved]
  - Myalgia [Recovered/Resolved]
  - Bone pain [Recovered/Resolved]
  - Arthralgia [Recovered/Resolved]
  - Nausea [Recovered/Resolved]
  - Rash [Unknown]
  - Decreased appetite [Recovered/Resolved]
  - Weight decreased [Not Recovered/Not Resolved]

NARRATIVE: CASE EVENT DATE: 20230901
